FAERS Safety Report 6756746-3 (Version None)
Quarter: 2010Q2

REPORT INFORMATION
  Report Type: 
  Country: None (occurrence: None)
  Receive Date: 20100604
  Receipt Date: 20100525
  Transmission Date: 20101027
  Serious: Yes (Hospitalization)
  Sender: FDA-Public Use
  Company Number: US-JNJFOC-20100510995

PATIENT
  Age: 4 Year
  Sex: Male
  Weight: 18.14 kg

DRUGS (2)
  1. CHILDREN'S MOTRIN [Suspect]
     Route: 048
  2. CHILDREN'S MOTRIN [Suspect]
     Indication: PYREXIA
     Route: 048

REACTIONS (3)
  - DIARRHOEA [None]
  - PRODUCT QUALITY ISSUE [None]
  - VOMITING [None]
